FAERS Safety Report 6127808-9 (Version None)
Quarter: 2009Q1

REPORT INFORMATION
  Report Type: 
  Country: None (occurrence: None)
  Receive Date: 20090323
  Receipt Date: 20090317
  Transmission Date: 20090719
  Serious: Yes (Life-Threatening, Hospitalization, Disabling)
  Sender: FDA-Public Use
  Company Number: JP-AVENTIS-200910461JP

PATIENT
  Age: 82 Year
  Sex: Female

DRUGS (6)
  1. DAONIL [Suspect]
     Indication: TYPE 2 DIABETES MELLITUS
     Route: 048
     Dates: start: 20030724, end: 20070723
  2. METHYCOBAL                         /00056201/ [Concomitant]
     Indication: NEUROPATHY PERIPHERAL
     Route: 048
     Dates: start: 20030724, end: 20070723
  3. GRAMALIL [Concomitant]
     Indication: DEMENTIA
     Route: 048
     Dates: start: 20030724, end: 20070723
  4. ASPIRIN [Concomitant]
     Indication: CEREBRAL INFARCTION
     Route: 048
     Dates: start: 20030724, end: 20070723
  5. LULLAN [Concomitant]
     Indication: DEMENTIA
     Route: 048
     Dates: start: 20030724, end: 20070723
  6. NU-LOTAN [Concomitant]
     Indication: HYPERTENSION
     Route: 048
     Dates: start: 20030724, end: 20070723

REACTIONS (3)
  - ALTERED STATE OF CONSCIOUSNESS [None]
  - HYPOGLYCAEMIC ENCEPHALOPATHY [None]
  - HYPOXIA [None]
